FAERS Safety Report 4549235-8 (Version None)
Quarter: 2005Q1

REPORT INFORMATION
  Report Type: 
  Country: None (occurrence: None)
  Receive Date: 20041230
  Receipt Date: 20040521
  Transmission Date: 20050727
  Serious: Yes (Death)
  Sender: FDA-Public Use
  Company Number: 04-05-0752

PATIENT
  Age: 76 Year
  Sex: Female

DRUGS (3)
  1. CLOZAPINE [Suspect]
     Dosage: 25MG BID ORAL
     Route: 048
     Dates: start: 20000101, end: 20040501
  2. ZOLOFT [Concomitant]
  3. ZYPREXA [Concomitant]

REACTIONS (1)
  - UNEVALUABLE EVENT [None]
